FAERS Safety Report 13276700 (Version 4)
Quarter: 2017Q2

REPORT INFORMATION
  Report Type: Spontaneous
  Country: DE (occurrence: DE)
  Receive Date: 20170228
  Receipt Date: 20170523
  Transmission Date: 20170830
  Serious: Yes (Hospitalization, Other)
  Sender: FDA-Public Use
  Company Number: DE-JNJFOC-20170225011

PATIENT
  Age: 12 Year
  Sex: Female
  Weight: 31 kg

DRUGS (11)
  1. REMICADE [Suspect]
     Active Substance: INFLIXIMAB
     Indication: CROHN^S DISEASE
     Route: 042
     Dates: start: 20170103
  2. AZATHIOPRIN [Concomitant]
     Active Substance: AZATHIOPRINE
     Indication: DRUG SPECIFIC ANTIBODY PRESENT
     Route: 065
     Dates: start: 20170307, end: 20170414
  3. AZATHIOPRIN [Concomitant]
     Active Substance: AZATHIOPRINE
     Indication: DRUG SPECIFIC ANTIBODY PRESENT
     Route: 065
     Dates: start: 20170131, end: 20170219
  4. PREDNISON [Concomitant]
     Active Substance: PREDNISONE
     Indication: ERYTHEMA NODOSUM
     Route: 065
     Dates: start: 20170228, end: 20170410
  5. REMICADE [Suspect]
     Active Substance: INFLIXIMAB
     Indication: CROHN^S DISEASE
     Dosage: APPROXIMATE TOTAL NUMBER OF INFUSIONS PATIENT RECEIVED 3
     Route: 042
     Dates: start: 20170321, end: 20170321
  6. FOLIC ACID. [Concomitant]
     Active Substance: FOLIC ACID
     Indication: FOLATE DEFICIENCY
     Route: 065
     Dates: start: 20170106
  7. VITAMIN D [Concomitant]
     Active Substance: CHOLECALCIFEROL
     Indication: VITAMIN D DECREASED
     Route: 065
     Dates: start: 20170106
  8. CEFACLOR. [Concomitant]
     Active Substance: CEFACLOR
     Indication: C-REACTIVE PROTEIN INCREASED
     Route: 065
     Dates: start: 20170216, end: 20170219
  9. CEFACLOR. [Concomitant]
     Active Substance: CEFACLOR
     Indication: TONSILLITIS
     Route: 065
     Dates: start: 20170216, end: 20170219
  10. REMICADE [Suspect]
     Active Substance: INFLIXIMAB
     Indication: CROHN^S DISEASE
     Route: 042
     Dates: start: 20170117
  11. VITAMIN B12 [Concomitant]
     Active Substance: CYANOCOBALAMIN
     Indication: VITAMIN B12 DEFICIENCY
     Route: 065
     Dates: start: 20170106

REACTIONS (5)
  - Drug specific antibody present [Unknown]
  - Nasal abscess [Recovered/Resolved]
  - Lung abscess [Recovered/Resolved]
  - Dermatitis atopic [Unknown]
  - Drug level below therapeutic [Unknown]

NARRATIVE: CASE EVENT DATE: 20170217
